FAERS Safety Report 5268424-0 (Version None)
Quarter: 2007Q1

REPORT INFORMATION
  Report Type: 
  Country: None (occurrence: None)
  Receive Date: 20070319
  Receipt Date: 20070309
  Transmission Date: 20070707
  Serious: Yes (Other)
  Sender: FDA-Public Use
  Company Number: IE-GLAXOSMITHKLINE-B0460378A

PATIENT
  Age: 51 Year
  Sex: Female

DRUGS (6)
  1. VENTOLIN [Suspect]
     Dosage: 100UG AS REQUIRED
     Route: 055
     Dates: start: 20011122
  2. LEXAPRO [Concomitant]
  3. XANAX [Concomitant]
  4. CICLESONIDE [Concomitant]
     Route: 055
  5. RETIN-A [Concomitant]
  6. MIRTAZAPINE [Concomitant]

REACTIONS (2)
  - EXTRASYSTOLES [None]
  - FLUSHING [None]
